FAERS Safety Report 4350403-9 (Version None)
Quarter: 2004Q2

REPORT INFORMATION
  Report Type: 
  Country: None (occurrence: None)
  Receive Date: 20040427
  Receipt Date: 20040415
  Transmission Date: 20050107
  Serious: Yes (Death, Hospitalization)
  Sender: FDA-Public Use
  Company Number: 163-20785-04030690

PATIENT
  Age: 71 Year
  Sex: Male

DRUGS (4)
  1. THALOMID [Suspect]
     Indication: MULTIPLE MYELOMA
     Dosage: 200 MG, DAILY, ORAL
     Route: 048
     Dates: start: 20031210, end: 20040201
  2. DIOVAN [Concomitant]
  3. PROSCAR [Concomitant]
  4. ATENOLOL [Concomitant]

REACTIONS (5)
  - MYOCARDIAL INFARCTION [None]
  - PNEUMONIA [None]
  - PULMONARY EMBOLISM [None]
  - PULSE ABSENT [None]
  - THROMBOSIS [None]
